FAERS Safety Report 13758598 (Version 1)
Quarter: 2017Q3

REPORT INFORMATION
  Report Type: Spontaneous
  Country: US (occurrence: US)
  Receive Date: 20170716
  Receipt Date: 20170716
  Transmission Date: 20171127
  Serious: Yes (Other)
  Sender: FDA-Public Use
  Company Number: None

PATIENT
  Age: 73 Year
  Sex: Female
  Weight: 75.6 kg

DRUGS (6)
  1. VIT B [Concomitant]
     Active Substance: VITAMIN B
  2. MAGNESIUM AND ZINC [Concomitant]
  3. LEVOFLOXACIN. [Suspect]
     Active Substance: LEVOFLOXACIN
     Indication: INFECTION
     Dosage: ?          OTHER STRENGTH:MG;QUANTITY:10 TABLET(S);?DAILY ORAL
     Route: 048
     Dates: start: 20170706, end: 20170715
  4. ZINC. [Concomitant]
     Active Substance: ZINC
  5. LOVASTATIN. [Concomitant]
     Active Substance: LOVASTATIN
  6. FISH OIL [Concomitant]
     Active Substance: FISH OIL

REACTIONS (2)
  - Tendon disorder [None]
  - Neuropathy peripheral [None]

NARRATIVE: CASE EVENT DATE: 20170715
